FAERS Safety Report 21696158 (Version 1)
Quarter: 2022Q4

REPORT INFORMATION
  Report Type: Spontaneous
  Country: US (occurrence: None)
  Receive Date: 20221207
  Receipt Date: 20221207
  Transmission Date: 20230112
  Serious: Yes (Other)
  Sender: FDA-Public Use
  Company Number: None

PATIENT
  Sex: Female

DRUGS (1)
  1. HUMIRA [Suspect]
     Active Substance: ADALIMUMAB
     Indication: Hidradenitis
     Dosage: 80MG OTHER SUBCUTANEOUS
     Route: 058
     Dates: start: 202111

REACTIONS (4)
  - Therapy interrupted [None]
  - Insurance issue [None]
  - Subcutaneous abscess [None]
  - Condition aggravated [None]
